FAERS Safety Report 7376790-5 (Version None)
Quarter: 2011Q1

REPORT INFORMATION
  Report Type: 
  Country: None (occurrence: None)
  Receive Date: 20110325
  Receipt Date: 20110316
  Transmission Date: 20110831
  Serious: Yes (Hospitalization)
  Sender: FDA-Public Use
  Company Number: JP-ASTRAZENECA-2011SE16263

PATIENT
  Age: 76 Year
  Sex: Female

DRUGS (5)
  1. SEROQUEL [Suspect]
     Route: 048
  2. DONEPEZIL HCL [Concomitant]
  3. CHLORPROMAZINE [Concomitant]
  4. SEROQUEL [Suspect]
     Route: 048
  5. YOKUKAN-SAN [Concomitant]

REACTIONS (2)
  - DRUG INEFFECTIVE FOR UNAPPROVED INDICATION [None]
  - CATATONIA [None]
